FAERS Safety Report 21020278 (Version 2)
Quarter: 2022Q3

REPORT INFORMATION
  Report Type: Report from Study
  Country: BR (occurrence: BR)
  Receive Date: 20220628
  Receipt Date: 20220713
  Transmission Date: 20221027
  Serious: Yes (Other)
  Sender: FDA-Public Use
  Company Number: BR-JNJFOC-20220646020

PATIENT
  Age: 52 Year
  Sex: Male
  Weight: 89 kg

DRUGS (3)
  1. SIMPONI [Suspect]
     Active Substance: GOLIMUMAB
     Indication: Rheumatoid arthritis
     Route: 058
     Dates: start: 202205
  2. METHOTREXATE [Suspect]
     Active Substance: METHOTREXATE
     Indication: Product used for unknown indication
     Route: 065
  3. LEFLUNOMIDE [Suspect]
     Active Substance: LEFLUNOMIDE
     Indication: Epilepsy
     Route: 065

REACTIONS (9)
  - Diabetes mellitus [Unknown]
  - Sinusitis [Unknown]
  - Asthma [Unknown]
  - Rhinitis [Unknown]
  - Visual impairment [Unknown]
  - Chest pain [Unknown]
  - Memory impairment [Unknown]
  - Blood pressure inadequately controlled [Unknown]
  - Anxiety [Unknown]
